FAERS Safety Report 4869013-X (Version None)
Quarter: 2005Q4

REPORT INFORMATION
  Report Type: 
  Country: None (occurrence: None)
  Receive Date: 20051223
  Receipt Date: 20051206
  Transmission Date: 20060501
  Serious: Yes (Hospitalization)
  Sender: FDA-Public Use
  Company Number: CA200511001242

PATIENT
  Age: 73 Year
  Sex: Female

DRUGS (3)
  1. FORTEO                      (TERIPARATIDE) [Suspect]
     Indication: OSTEOPOROSIS
     Dosage: 20 UG, DAILY (1/D), UNK
     Dates: start: 20050706
  2. FORTEO PEN (250MCG/ML) [Concomitant]
  3. DIOVAN [Concomitant]

REACTIONS (2)
  - HERPES ZOSTER [None]
  - INFLUENZA LIKE ILLNESS [None]
